FAERS Safety Report 7634600-2 (Version None)
Quarter: 2011Q3

REPORT INFORMATION
  Report Type: 
  Country: None (occurrence: None)
  Receive Date: 20110725
  Receipt Date: 20100226
  Transmission Date: 20111222
  Serious: Yes (Other)
  Sender: FDA-Public Use
  Company Number: DE-GENENTECH-321877

PATIENT
  Age: 83 Year

DRUGS (1)
  1. LUCENTIS [Suspect]
     Indication: AGE-RELATED MACULAR DEGENERATION
     Dosage: UNK UNK, UNKNOWN
     Route: 031

REACTIONS (1)
  - CHOROIDAL NEOVASCULARISATION [None]
